FAERS Safety Report 8135613-7 (Version None)
Quarter: 2012Q1

REPORT INFORMATION
  Report Type: 
  Country: None (occurrence: None)
  Receive Date: 20120214
  Receipt Date: 20120208
  Transmission Date: 20120608
  Serious: Yes (Other)
  Sender: FDA-Public Use
  Company Number: PHHY2012BR011959

PATIENT
  Sex: Female

DRUGS (3)
  1. DIOVAN HCT [Suspect]
  2. SIMVASTATIN [Concomitant]
     Indication: BLOOD CHOLESTEROL
     Dosage: 20 MG, QD
  3. EXFORGE [Suspect]
     Indication: HYPERTENSION
     Dosage: 1 DF (160/5 MG ), QD IN THE MORNING

REACTIONS (4)
  - PAIN IN EXTREMITY [None]
  - OSTEOMYELITIS [None]
  - MUSCULAR WEAKNESS [None]
  - BLOOD GLUCOSE FLUCTUATION [None]
